FAERS Safety Report 6698530-5 (Version None)
Quarter: 2010Q2

REPORT INFORMATION
  Report Type: 
  Country: None (occurrence: None)
  Receive Date: 20100427
  Receipt Date: 20100426
  Transmission Date: 20101027
  Serious: Yes (Hospitalization)
  Sender: FDA-Public Use
  Company Number: GXKR2010DE04584

PATIENT
  Age: 72 Year
  Sex: Female
  Weight: 83 kg

DRUGS (14)
  1. ACETYLSALICYLIC ACID SRT [Suspect]
     Indication: ISCHAEMIC HEART DISEASE PROPHYLAXIS
     Dosage: 100 MG, QD
     Route: 048
  2. THOMAPYRIN [Suspect]
     Indication: NASOPHARYNGITIS
     Dosage: 1 DF, TID
     Route: 048
     Dates: start: 20091229, end: 20100103
  3. BISOPROLOL [Concomitant]
  4. LEVOTHYROXINE SODIUM [Concomitant]
  5. MYDOCALM ^GEDEON RICHTER^ [Concomitant]
  6. DOXEPIN HCL [Concomitant]
  7. MICARDIS HCT [Concomitant]
  8. FINLEPSIN - SLOW RELEASE [Concomitant]
  9. MOXONIDINE [Concomitant]
  10. INEGY [Concomitant]
  11. NIVADIL [Concomitant]
  12. RASILEZ HCT [Concomitant]
  13. DIAZEPAM [Concomitant]
  14. GLYCERYL TRINITRATE [Concomitant]

REACTIONS (1)
  - COLITIS [None]
